FAERS Safety Report 7830298-9 (Version None)
Quarter: 2011Q4

REPORT INFORMATION
  Report Type: 
  Country: None (occurrence: None)
  Receive Date: 20111021
  Receipt Date: 20111011
  Transmission Date: 20120403
  Serious: Yes (Life-Threatening, Hospitalization)
  Sender: FDA-Public Use
  Company Number: DE-SANOFI-AVENTIS-2011SA066990

PATIENT
  Age: 32 Year
  Sex: Female

DRUGS (1)
  1. ARAVA [Suspect]
     Indication: RHEUMATOID ARTHRITIS
     Route: 065
     Dates: start: 20071001

REACTIONS (14)
  - PYREXIA [None]
  - HAEMATOMA INFECTION [None]
  - DIARRHOEA [None]
  - SUBCUTANEOUS ABSCESS [None]
  - OSTEOMYELITIS [None]
  - OROPHARYNGEAL PAIN [None]
  - TONSILLITIS [None]
  - CHILLS [None]
  - TOOTH INFECTION [None]
  - PNEUMONIA FUNGAL [None]
  - BONE MARROW FAILURE [None]
  - PANCYTOPENIA [None]
  - INFECTION [None]
  - PAIN [None]
